FAERS Safety Report 7992113-2 (Version None)
Quarter: 2011Q4

REPORT INFORMATION
  Report Type: 
  Country: None (occurrence: None)
  Receive Date: 20111219
  Receipt Date: 20101117
  Transmission Date: 20120403
  Serious: No
  Sender: FDA-Public Use
  Company Number: US-ASTRAZENECA-2010SE54915

PATIENT
  Age: 763 Month
  Sex: Male
  Weight: 77.1 kg

DRUGS (5)
  1. CRESTOR [Suspect]
     Indication: BLOOD CHOLESTEROL INCREASED
     Route: 048
     Dates: start: 20090101, end: 20101001
  2. BENICAR [Concomitant]
  3. GLIMEPIRIDE [Concomitant]
  4. CRESTOR [Suspect]
     Route: 048
  5. AMLODIPINE BESYLATE [Concomitant]

REACTIONS (2)
  - MUSCULOSKELETAL PAIN [None]
  - DRUG DOSE OMISSION [None]
